FAERS Safety Report 5587166-5 (Version None)
Quarter: 2008Q1

REPORT INFORMATION
  Report Type: 
  Country: None (occurrence: None)
  Receive Date: 20080107
  Receipt Date: 20071227
  Transmission Date: 20080703
  Serious: Yes (Death, Life-Threatening, Hospitalization)
  Sender: FDA-Public Use
  Company Number: 2007-02965

PATIENT
  Sex: Female
  Weight: 55 kg

DRUGS (15)
  1. VELCADE [Suspect]
     Indication: MULTIPLE MYELOMA
     Dates: start: 20070817, end: 20070824
  2. CYCLOPHOSPHAMIDE [Suspect]
     Indication: MULTIPLE MYELOMA
     Dates: start: 20070817, end: 20070817
  3. DEXAMETHASONE TAB [Suspect]
     Indication: MULTIPLE MYELOMA
     Dosage: 40.00 MG, ORAL
     Route: 048
     Dates: start: 20070817, end: 20070829
  4. METRONIDAZOLE [Concomitant]
  5. FLUCONAZOLE [Concomitant]
  6. MESNA [Concomitant]
  7. GRANISETRON  HCL [Concomitant]
  8. CIPROFLOXACIN [Concomitant]
  9. DICLOFENAC (DICLOFENAC) [Concomitant]
  10. MIRTAZAPINE [Concomitant]
  11. METAMIZOLE (METAMIZOLE) [Concomitant]
  12. FENTANYL [Concomitant]
  13. PANTOPRAZOLE SODIUM [Concomitant]
  14. ENOXAPARIN SODIUM [Concomitant]
  15. METOCLOPRAMIDE (METOCLOPRAMIDE) [Concomitant]

REACTIONS (8)
  - ARTERIAL HAEMORRHAGE [None]
  - BUNDLE BRANCH BLOCK RIGHT [None]
  - DUODENAL ULCER HAEMORRHAGE [None]
  - GASTROINTESTINAL FISTULA [None]
  - PLEURAL EFFUSION [None]
  - PNEUMONIA [None]
  - TACHYCARDIA [None]
  - UPPER GASTROINTESTINAL HAEMORRHAGE [None]
